FAERS Safety Report 5255384-1 (Version None)
Quarter: 2007Q1

REPORT INFORMATION
  Report Type: 
  Country: None (occurrence: None)
  Receive Date: 20070305
  Receipt Date: 20070222
  Transmission Date: 20070707
  Serious: Yes (Death, Hospitalization)
  Sender: FDA-Public Use
  Company Number: SE-ROCHE-482865

PATIENT
  Age: 37 Year
  Sex: Male

DRUGS (6)
  1. CYMEVENE [Suspect]
     Dosage: FORM REPORTED AS POWDER SOLUTION FOR INFUSION. DOSAGE REGIMEN REPORTED AS 1 DFN.
     Route: 042
     Dates: start: 20041004, end: 20041123
  2. MERONEM [Concomitant]
  3. PRECORTALON [Concomitant]
     Dosage: MEDICATION REPORTED AS PRECORTALON AQUOSUM.
  4. BACTRIM [Concomitant]
  5. SANDIMMUNE [Concomitant]
  6. AMBISOME [Concomitant]

REACTIONS (2)
  - HYPERBILIRUBINAEMIA [None]
  - THROMBOCYTOPENIA [None]
